FAERS Safety Report 9813211 (Version 1)
Quarter: 2014Q1

REPORT INFORMATION
  Report Type: Spontaneous
  Country: RO (occurrence: None)
  Receive Date: 20140109
  Receipt Date: 20140109
  Transmission Date: 20141002
  Serious: Yes (Hospitalization, Other)
  Sender: FDA-Public Use
  Company Number: US-2013-12439

PATIENT
  Age: 52 Year
  Sex: Male

DRUGS (6)
  1. OPC-41061 (TOLVAPTAN) TABLET [Suspect]
     Indication: CONGENITAL CYSTIC KIDNEY DISEASE
     Route: 048
     Dates: start: 20111111, end: 20131221
  2. CARBAMAZEPINUM (CARBAMAZEPINUM) [Concomitant]
  3. AMLODIPINUM TAD (AMLODIPINE BESILATE) [Concomitant]
  4. IRBESARTAN (IRBESARTAN) [Concomitant]
  5. LIPANTHYL SUPRA (FENOFIBRATE) [Concomitant]
  6. CONTROLOC (PANTOPRAZOLE SODIUM) [Concomitant]

REACTIONS (1)
  - Pancreatitis acute [None]
